FAERS Safety Report 17194116 (Version 1)
Quarter: 2019Q4

REPORT INFORMATION
  Report Type: Report from Study
  Country: US (occurrence: US)
  Receive Date: 20191224
  Receipt Date: 20191224
  Transmission Date: 20200122
  Serious: Yes (Death, Hospitalization)
  Sender: FDA-Public Use
  Company Number: US-ZYDUS-044961

PATIENT
  Age: 58 Year
  Sex: Male

DRUGS (2)
  1. MORPHINE/MORPHINE HYDROCHLORIDE/MORPHINE SULFATE/MORPHINE TARTRATE [Suspect]
     Active Substance: MORPHINE\MORPHINE HYDROCHLORIDE\MORPHINE SULFATE\MORPHINE TARTRATE
     Indication: PRODUCT USED FOR UNKNOWN INDICATION
     Route: 065
  2. OXYCODONE [Suspect]
     Active Substance: OXYCODONE
     Indication: PRODUCT USED FOR UNKNOWN INDICATION
     Route: 065

REACTIONS (11)
  - Hypotension [Unknown]
  - Electrocardiogram QT prolonged [Unknown]
  - Hyperreflexia [Unknown]
  - Respiratory depression [Unknown]
  - Electrocardiogram QRS complex prolonged [Unknown]
  - Acute kidney injury [Unknown]
  - Coagulopathy [Unknown]
  - Bradycardia [Unknown]
  - Nervous system disorder [Unknown]
  - Arrhythmia [Unknown]
  - Toxicity to various agents [Fatal]
